FAERS Safety Report 7355027-7 (Version None)
Quarter: 2011Q1

REPORT INFORMATION
  Report Type: 
  Country: None (occurrence: None)
  Receive Date: 20110316
  Receipt Date: 20110307
  Transmission Date: 20110831
  Serious: Yes (Hospitalization)
  Sender: FDA-Public Use
  Company Number: GB-NOVOPROD-321639

PATIENT
  Age: 38 Year
  Sex: Male
  Weight: 130 kg

DRUGS (2)
  1. ORLISTAT [Suspect]
     Indication: PRODUCT USED FOR UNKNOWN INDICATION
  2. VICTOZA [Suspect]
     Indication: PRODUCT USED FOR UNKNOWN INDICATION
     Dosage: 1.2 MG, QD
     Route: 058
     Dates: start: 20110102

REACTIONS (2)
  - ABDOMINAL PAIN [None]
  - VOMITING [None]
